FAERS Safety Report 18619021 (Version 2)
Quarter: 2020Q4

REPORT INFORMATION
  Report Type: Spontaneous
  Country: US (occurrence: US)
  Receive Date: 20201215
  Receipt Date: 20201222
  Transmission Date: 20210114
  Serious: Yes (Hospitalization)
  Sender: FDA-Public Use
  Company Number: US-VERTEX PHARMACEUTICALS-2020-024485

PATIENT
  Age: 15 Year
  Sex: Female

DRUGS (28)
  1. TRIKAFTA [Suspect]
     Active Substance: ELEXACAFTOR\IVACAFTOR\TEZACAFTOR
     Indication: CYSTIC FIBROSIS
     Dosage: 2 TABS (100 MG ELEXACAFTOR/ 50 MG TEZACAFTOR/ 75 MG IVACAFTOR) AM AND 1 TAB (150MG IVACAFTOR) PM
     Route: 048
     Dates: start: 20191213
  2. ALBUTEROL [SALBUTAMOL] [Concomitant]
     Active Substance: ALBUTEROL
  3. FLOMAX [MORNIFLUMATE] [Concomitant]
     Active Substance: MORNIFLUMATE
  4. ALBUTEROL SULFATE. [Concomitant]
     Active Substance: ALBUTEROL SULFATE
  5. POLYETHYLENE GLYCOL [MACROGOL] [Concomitant]
     Active Substance: POLYETHYLENE GLYCOLS
  6. CULTURELLE [Concomitant]
     Active Substance: LACTOBACILLUS RHAMNOSUS
  7. DEPO-PROVERA [Concomitant]
     Active Substance: MEDROXYPROGESTERONE ACETATE
  8. MIRALAX [Concomitant]
     Active Substance: POLYETHYLENE GLYCOL 3350
  9. ZENPEP [Concomitant]
     Active Substance: PANCRELIPASE AMYLASE\PANCRELIPASE LIPASE\PANCRELIPASE PROTEASE
  10. AZITHROMYCIN ANHYDROUS. [Concomitant]
     Active Substance: AZITHROMYCIN ANHYDROUS
  11. DITROPAN [Concomitant]
     Active Substance: OXYBUTYNIN CHLORIDE
  12. PULMOZYME [Concomitant]
     Active Substance: DORNASE ALFA
  13. PEPCID [Concomitant]
     Active Substance: FAMOTIDINE
  14. FLONASE [Concomitant]
     Active Substance: FLUTICASONE PROPIONATE
  15. MELOXICAM. [Concomitant]
     Active Substance: MELOXICAM
  16. SINGULAIR [Concomitant]
     Active Substance: MONTELUKAST SODIUM
  17. TOBI PODHALER [Concomitant]
     Active Substance: TOBRAMYCIN
  18. OMEPRAZOLE. [Concomitant]
     Active Substance: OMEPRAZOLE
  19. HYPERSAL [Concomitant]
     Active Substance: SODIUM CHLORIDE
  20. REPLESTA [Concomitant]
     Active Substance: CHOLECALCIFEROL
  21. DULCOLAX (BISACODYL) [Concomitant]
     Active Substance: BISACODYL
  22. CAYSTON [Concomitant]
     Active Substance: AZTREONAM
  23. COLACE [Concomitant]
     Active Substance: DOCUSATE SODIUM
  24. FLOVENT [Concomitant]
     Active Substance: FLUTICASONE PROPIONATE
  25. QVAR REDIHALER [Concomitant]
     Active Substance: BECLOMETHASONE DIPROPIONATE
  26. ALL DAY ALLERGY [Concomitant]
     Active Substance: CETIRIZINE HYDROCHLORIDE
  27. ZYRTEC [Concomitant]
     Active Substance: CETIRIZINE HYDROCHLORIDE
  28. ZOFRAN [Concomitant]
     Active Substance: ONDANSETRON HYDROCHLORIDE

REACTIONS (1)
  - Nephrolithiasis [Unknown]

NARRATIVE: CASE EVENT DATE: 20200828
